FAERS Safety Report 7239256-9 (Version None)
Quarter: 2011Q1

REPORT INFORMATION
  Report Type: 
  Country: None (occurrence: None)
  Receive Date: 20110121
  Receipt Date: 20110112
  Transmission Date: 20110831
  Serious: Yes (Hospitalization)
  Sender: FDA-Public Use
  Company Number: US-CEPHALON-2011000201

PATIENT
  Age: 26 Year
  Sex: Male

DRUGS (9)
  1. DRONABINOL [Concomitant]
  2. FENTANYL [Suspect]
     Route: 062
  3. OXYCODONE HCL AND ACETAMINOPHEN [Concomitant]
  4. MERCAPTOPURINE [Concomitant]
  5. ANTIDEPRESSANTS [Concomitant]
  6. ACTIQ [Suspect]
     Route: 002
  7. PHENOBARB WITH BELLADONNA [Concomitant]
  8. HUMARA [Concomitant]
  9. PROTON PUMP INHIBITOR [Concomitant]

REACTIONS (9)
  - HYPERVENTILATION [None]
  - LACRIMATION INCREASED [None]
  - DROOLING [None]
  - SOMNOLENCE [None]
  - CHILLS [None]
  - SUICIDE ATTEMPT [None]
  - OVERDOSE [None]
  - CONVULSION [None]
  - VOMITING [None]
